FAERS Safety Report 23250988 (Version 3)
Quarter: 2024Q2

REPORT INFORMATION
  Report Type: Report from Study
  Country: US (occurrence: US)
  Receive Date: 20231201
  Receipt Date: 20240509
  Transmission Date: 20240716
  Serious: Yes (Other)
  Sender: FDA-Public Use
  Company Number: US-ALXN-A202310634AA

PATIENT
  Age: 59 Year
  Sex: Female

DRUGS (1)
  1. STRENSIQ [Suspect]
     Active Substance: ASFOTASE ALFA
     Indication: Hypophosphatasia
     Dosage: UNK
     Route: 065

REACTIONS (10)
  - Nephrolithiasis [Not Recovered/Not Resolved]
  - Illness [Unknown]
  - Blood urine present [Not Recovered/Not Resolved]
  - Tooth loss [Unknown]
  - Dental caries [Unknown]
  - Gingival discolouration [Unknown]
  - Tooth disorder [Unknown]
  - Laboratory test abnormal [Unknown]
  - Blood alkaline phosphatase abnormal [Unknown]
  - Injection site pain [Recovered/Resolved]

NARRATIVE: CASE EVENT DATE: 20230828
